FAERS Safety Report 7289878-4 (Version None)
Quarter: 2011Q1

REPORT INFORMATION
  Report Type: 
  Country: None (occurrence: None)
  Receive Date: 20110126
  Receipt Date: 20101231
  Transmission Date: 20110831
  Serious: Yes (Death)
  Sender: FDA-Public Use
  Company Number: AUR-APL-2011-00082

PATIENT
  Age: 61 Year
  Sex: Male

DRUGS (8)
  1. MIRTAZAPINE [Suspect]
  2. BENZONATATE [Suspect]
  3. LORAZEPAM [Suspect]
  4. LISINOPRIL [Suspect]
  5. RISPERDONE [Suspect]
  6. BENZTROPINE MESYLATE [Suspect]
  7. DOXAZOSIN MESYLATE [Suspect]
  8. TEMAZEPAM [Suspect]

REACTIONS (3)
  - INTENTIONAL DRUG MISUSE [None]
  - TOXICITY TO VARIOUS AGENTS [None]
  - COMPLETED SUICIDE [None]
